FAERS Safety Report 23116341 (Version 2)
Quarter: 2023Q4

REPORT INFORMATION
  Report Type: Spontaneous
  Country: US (occurrence: US)
  Receive Date: 20231027
  Receipt Date: 20231227
  Transmission Date: 20240110
  Serious: Yes (Hospitalization, Other)
  Sender: FDA-Public Use
  Company Number: US-PFIZER INC-202300342063

PATIENT
  Age: 88 Year
  Sex: Male
  Weight: 74.83 kg

DRUGS (10)
  1. VYNDAMAX [Suspect]
     Active Substance: TAFAMIDIS
     Indication: Cardiac amyloidosis
     Dosage: 61 MG, 1X/DAY
     Dates: start: 2022
  2. ASPIRIN [Concomitant]
     Active Substance: ASPIRIN
     Dosage: 81 MG, 1X/DAY
  3. FAMOTIDINE [Concomitant]
     Active Substance: FAMOTIDINE
     Dosage: [TAKE ONE TABLET BY MOUTH ONCE DAILY AT BEDTIME]
     Route: 048
  4. GABAPENTIN [Concomitant]
     Active Substance: GABAPENTIN
     Dosage: [TAKE ONE CAPSULE BY MOUTH ONCE DAILY AT BEDTIME]
     Route: 048
  5. FUROSEMIDE [Concomitant]
     Active Substance: FUROSEMIDE
     Dosage: [TAKE ONE TABLET BY MOUTH THREE TIMES WEEKLY (M-W-F)]
     Route: 048
  6. CINACALCET HYDROCHLORIDE [Concomitant]
     Active Substance: CINACALCET HYDROCHLORIDE
     Dosage: [TAKE ONE TABLET BY MOUTH ONCE DAILY WITH FOOD]
     Route: 048
  7. CARVEDILOL [Concomitant]
     Active Substance: CARVEDILOL
     Dosage: [TAKE ONE TABLET BY MOUTH 2 TIMES A DAY]
     Route: 048
  8. FINASTERIDE [Concomitant]
     Active Substance: FINASTERIDE
     Dosage: [TAKE ONE TABLET BY MOUTH ONCE DAILY]
     Route: 048
  9. PREDNISONE [Concomitant]
     Active Substance: PREDNISONE
     Dosage: [TAKE TWO TABLETS BY MOUTH ONCE DAILY]
     Route: 048
  10. TERAZOSIN HYDROCHLORIDE [Concomitant]
     Active Substance: TERAZOSIN HYDROCHLORIDE
     Dosage: [TAKE ONE CAPSULE BY MOUTH ONCE DAILY AT BED TIME]
     Route: 048

REACTIONS (13)
  - Pneumonia [Not Recovered/Not Resolved]
  - COVID-19 [Not Recovered/Not Resolved]
  - Back pain [Not Recovered/Not Resolved]
  - Body height decreased [Not Recovered/Not Resolved]
  - Gait disturbance [Not Recovered/Not Resolved]
  - Arthralgia [Unknown]
  - Asthenia [Unknown]
  - Derealisation [Recovered/Resolved]
  - Tremor [Unknown]
  - Headache [Unknown]
  - Decreased appetite [Unknown]
  - Asthenia [Unknown]
  - Fatigue [Unknown]

NARRATIVE: CASE EVENT DATE: 20231001
